FAERS Safety Report 5891648-6 (Version None)
Quarter: 2008Q3

REPORT INFORMATION
  Report Type: 
  Country: None (occurrence: None)
  Receive Date: 20080908
  Receipt Date: 20080521
  Transmission Date: 20090109
  Serious: No
  Sender: FDA-Public Use
  Company Number: 002#2#2008-00354

PATIENT
  Age: 66 Year
  Sex: Male
  Weight: 78.4723 kg

DRUGS (1)
  1. NEUPRO [Suspect]
     Dosage: 6MG/24H,1 IN 1 D,TRANSDERMAL
     Route: 062

REACTIONS (5)
  - APPLICATION SITE HYPERSENSITIVITY [None]
  - APPLICATION SITE REACTION [None]
  - DRUG INEFFECTIVE [None]
  - INCORRECT DRUG ADMINISTRATION DURATION [None]
  - SKIN IRRITATION [None]
